FAERS Safety Report 17939851 (Version 2)
Quarter: 2021Q1

REPORT INFORMATION
  Report Type: Other
  Country: ZA (occurrence: ZA)
  Receive Date: 20200625
  Receipt Date: 20210202
  Transmission Date: 20210419
  Serious: Yes (Other)
  Sender: FDA-Public Use
  Company Number: ZA-ROCHE-2620358

PATIENT
  Sex: Female

DRUGS (8)
  1. MABTHERA [Suspect]
     Active Substance: RITUXIMAB
     Dosage: INFUSED ON DAY 1 AND DAY 15
     Route: 041
     Dates: start: 20200115
  2. MABTHERA [Suspect]
     Active Substance: RITUXIMAB
     Route: 041
     Dates: start: 201208
  3. MABTHERA [Suspect]
     Active Substance: RITUXIMAB
     Dosage: INFUSED ON DAY 1 AND DAY 15
     Route: 041
  4. MABTHERA [Suspect]
     Active Substance: RITUXIMAB
     Route: 041
     Dates: start: 201201
  5. METHOTREXATE. [Concomitant]
     Active Substance: METHOTREXATE
     Route: 058
     Dates: start: 2007, end: 2013
  6. ARAVA [Concomitant]
     Active Substance: LEFLUNOMIDE
     Dates: start: 2008
  7. CHLOROQUINE. [Concomitant]
     Active Substance: CHLOROQUINE
     Dates: start: 2007
  8. MABTHERA [Suspect]
     Active Substance: RITUXIMAB
     Indication: RHEUMATOID ARTHRITIS
     Route: 041
     Dates: start: 200907

REACTIONS (3)
  - Cervix carcinoma [Unknown]
  - C-reactive protein increased [Unknown]
  - Haemoglobin increased [Unknown]

NARRATIVE: CASE EVENT DATE: 2011
